FAERS Safety Report 7398833-5 (Version None)
Quarter: 2011Q2

REPORT INFORMATION
  Report Type: 
  Country: None (occurrence: None)
  Receive Date: 20110404
  Receipt Date: 20110404
  Transmission Date: 20111010
  Serious: No
  Sender: FDA-Public Use
  Company Number: None

PATIENT
  Age: 49 Year
  Sex: Male

DRUGS (1)
  1. PACLITAXEL [Suspect]
     Indication: NON-SMALL CELL LUNG CANCER
     Dosage: 330MG IV
     Route: 042

REACTIONS (6)
  - DIZZINESS [None]
  - ANXIETY [None]
  - FEELING ABNORMAL [None]
  - HEART RATE INCREASED [None]
  - DYSPNOEA [None]
  - INFUSION RELATED REACTION [None]
